FAERS Safety Report 6720510-1 (Version None)
Quarter: 2010Q2

REPORT INFORMATION
  Report Type: 
  Country: None (occurrence: None)
  Receive Date: 20100511
  Receipt Date: 20100428
  Transmission Date: 20101027
  Serious: Yes (Hospitalization)
  Sender: FDA-Public Use
  Company Number: JP-AMGEN-QUU409766

PATIENT
  Age: 65 Year
  Sex: Male

DRUGS (5)
  1. ENBREL [Suspect]
     Indication: RHEUMATOID ARTHRITIS
     Route: 058
     Dates: start: 20090601
  2. ENBREL [Suspect]
     Route: 058
     Dates: start: 20090601, end: 20090701
  3. PREDONINE [Concomitant]
     Route: 048
  4. RHEUMATREX [Concomitant]
     Dates: end: 20090701
  5. RHEUMATREX [Concomitant]
     Route: 048
     Dates: start: 20090801

REACTIONS (1)
  - PNEUMOCYSTIS JIROVECI PNEUMONIA [None]
